FAERS Safety Report 7244932-8 (Version None)
Quarter: 2011Q1

REPORT INFORMATION
  Report Type: 
  Country: None (occurrence: None)
  Receive Date: 20110126
  Receipt Date: 20110119
  Transmission Date: 20110831
  Serious: Yes (Hospitalization)
  Sender: FDA-Public Use
  Company Number: US-ELI_LILLY_AND_COMPANY-US201101005242

PATIENT
  Sex: Female

DRUGS (3)
  1. HUMALOG [Suspect]
     Indication: DIABETES MELLITUS
     Dosage: UNK, 3/D
     Dates: start: 20090101
  2. LEVEMIR [Concomitant]
     Dosage: 34 U, 2/D
  3. LEVEMIR [Concomitant]
     Dosage: 22 U, 2/D

REACTIONS (3)
  - DYSPNOEA [None]
  - CARDIAC DISORDER [None]
  - CHEST DISCOMFORT [None]
